FAERS Safety Report 7457413-3 (Version None)
Quarter: 2011Q2

REPORT INFORMATION
  Report Type: 
  Country: None (occurrence: None)
  Receive Date: 20110501
  Receipt Date: 20110501
  Transmission Date: 20111010
  Serious: Yes (Hospitalization, Other)
  Sender: FDA-Public Use
  Company Number: None

PATIENT
  Age: 55 Year
  Sex: Female
  Weight: 70.7611 kg

DRUGS (6)
  1. WELLBUTRIN [Concomitant]
  2. CYMBALTA [Suspect]
     Indication: DEPRESSION
     Dosage: 60 MG 1X A DAY PO
     Route: 048
     Dates: start: 20080310, end: 20090120
  3. PAXIL [Concomitant]
  4. ATIVAN [Concomitant]
  5. VALIUM [Concomitant]
  6. GEODON [Concomitant]

REACTIONS (4)
  - LOSS OF EMPLOYMENT [None]
  - SUICIDAL IDEATION [None]
  - DEPRESSION [None]
  - DRUG WITHDRAWAL SYNDROME [None]
